FAERS Safety Report 20689464 (Version 1)
Quarter: 2022Q2

REPORT INFORMATION
  Report Type: Spontaneous
  Country: US (occurrence: US)
  Receive Date: 20220408
  Receipt Date: 20220408
  Transmission Date: 20220720
  Serious: Yes (Other)
  Sender: FDA-Public Use
  Company Number: US-JNJFOC-20220412659

PATIENT
  Age: 70 Year
  Sex: Female

DRUGS (3)
  1. XARELTO [Suspect]
     Active Substance: RIVAROXABAN
     Indication: Thrombosis
     Route: 048
  2. ASPIRIN [Suspect]
     Active Substance: ASPIRIN
     Indication: Thrombosis
     Route: 065
  3. BRILINTA [Suspect]
     Active Substance: TICAGRELOR
     Indication: Thrombosis
     Route: 065

REACTIONS (1)
  - Gastrointestinal haemorrhage [Unknown]
